FAERS Safety Report 18627614 (Version 8)
Quarter: 2021Q4

REPORT INFORMATION
  Report Type: Report from Study
  Country: DE (occurrence: DE)
  Receive Date: 20201217
  Receipt Date: 20211109
  Transmission Date: 20220303
  Serious: Yes (Death, Hospitalization, Other)
  Sender: FDA-Public Use
  Company Number: DE-BOEHRINGERINGELHEIM-2020-BI-067348

PATIENT
  Age: 55 Year
  Sex: Male
  Weight: 65.7 kg

DRUGS (3)
  1. NINTEDANIB [Suspect]
     Active Substance: NINTEDANIB
     Indication: Non-small cell lung cancer
     Dosage: 200 MG BID
     Dates: start: 20201114, end: 20201216
  2. NINTEDANIB [Suspect]
     Active Substance: NINTEDANIB
  3. DOCETAXEL [Suspect]
     Active Substance: DOCETAXEL
     Indication: Non-small cell lung cancer
     Dosage: FORM: LIQUID
     Dates: start: 20201113, end: 20201204

REACTIONS (2)
  - General physical health deterioration [Fatal]
  - Febrile neutropenia [Recovered/Resolved]

NARRATIVE: CASE EVENT DATE: 20201120
